FAERS Safety Report 7828275-7 (Version None)
Quarter: 2011Q4

REPORT INFORMATION
  Report Type: 
  Country: None (occurrence: None)
  Receive Date: 20111020
  Receipt Date: 20111014
  Transmission Date: 20120403
  Serious: No
  Sender: FDA-Public Use
  Company Number: US-PFIZER INC-2011248010

PATIENT
  Sex: Female

DRUGS (3)
  1. GABAPENTIN [Suspect]
  2. LYRICA [Suspect]
  3. NEURONTIN [Suspect]

REACTIONS (1)
  - MEDICATION RESIDUE [None]
